FAERS Safety Report 9629185 (Version 1)
Quarter: 2013Q4

REPORT INFORMATION
  Report Type: Spontaneous
  Country: FR (occurrence: FR)
  Receive Date: 20131017
  Receipt Date: 20131017
  Transmission Date: 20140711
  Serious: Yes (Other)
  Sender: FDA-Public Use
  Company Number: FR-JNJFOC-20131006781

PATIENT
  Age: 39 Year
  Sex: Female

DRUGS (5)
  1. SIMPONI [Suspect]
     Indication: ANKYLOSING SPONDYLITIS
     Route: 058
     Dates: start: 20130613, end: 20130813
  2. CELEBREX [Concomitant]
     Route: 065
  3. ACUPAN [Concomitant]
     Route: 065
  4. LAROXYL [Concomitant]
     Route: 065
  5. DOLIPRANE [Concomitant]
     Route: 065

REACTIONS (5)
  - Musculoskeletal pain [Recovered/Resolved]
  - Asthenia [Recovered/Resolved]
  - Chills [Recovered/Resolved]
  - Tooth fracture [Recovered/Resolved]
  - Muscle spasms [Recovered/Resolved]
